FAERS Safety Report 8347283-3 (Version None)
Quarter: 2012Q2

REPORT INFORMATION
  Report Type: 
  Country: None (occurrence: None)
  Receive Date: 20120509
  Receipt Date: 20120503
  Transmission Date: 20120825
  Serious: Yes (Other)
  Sender: FDA-Public Use
  Company Number: IT-ROCHE-1065645

PATIENT

DRUGS (4)
  1. AVASTIN [Suspect]
     Indication: PRODUCT USED FOR UNKNOWN INDICATION
     Dates: start: 20090701, end: 20090701
  2. FLUOROURACIL [Concomitant]
  3. OMEPRAZOLE [Concomitant]
  4. DEXAMETHASONE (NON-ROCHE/NON-COMPARATOR) [Concomitant]

REACTIONS (1)
  - HYPERTENSIVE CRISIS [None]
